FAERS Safety Report 5393330-0 (Version None)
Quarter: 2007Q3

REPORT INFORMATION
  Report Type: 
  Country: None (occurrence: None)
  Receive Date: 20070723
  Receipt Date: 20070712
  Transmission Date: 20080115
  Serious: Yes (Hospitalization, Other)
  Sender: FDA-Public Use
  Company Number: PHFR2007GB00676

PATIENT
  Age: 38 Year
  Sex: Male
  Weight: 48 kg

DRUGS (12)
  1. FLUOXETINE [Concomitant]
  2. QUETIAPINE [Concomitant]
     Dosage: 500MG/DAY
     Route: 048
     Dates: start: 20070124
  3. ZOPICLONE [Concomitant]
     Dosage: 7.5MG/DAY
     Route: 048
     Dates: start: 20070124
  4. GLICLAZIDE [Concomitant]
     Dosage: 320MG/DAY
     Route: 048
     Dates: start: 20070124
  5. METFORMIN HCL [Concomitant]
     Dosage: 1000MG/DAY
     Route: 065
     Dates: start: 20070124
  6. LANSOPRAZOLE [Concomitant]
     Dosage: 15MG/DAY
     Route: 048
     Dates: start: 20070124
  7. SIMVASTATIN [Concomitant]
     Dosage: 40MG/DAY
     Route: 048
     Dates: start: 20070121
  8. CLOZARIL [Suspect]
     Indication: SCHIZOPHRENIA
     Dosage: 550MG/DAY
     Route: 048
     Dates: start: 20000728
  9. PABRINEX [Concomitant]
     Indication: ALCOHOLISM
     Route: 030
     Dates: start: 20070124, end: 20070129
  10. VITAMIN B [Concomitant]
     Indication: ALCOHOLISM
     Dosage: 1 TABLET DAILY
     Route: 048
     Dates: start: 20070201, end: 20070220
  11. ACAMPROSATE [Concomitant]
     Indication: ALCOHOLISM
     Dosage: 666 MG, BID
     Route: 065
     Dates: start: 20070205
  12. VITAMIN CAP [Concomitant]
     Indication: ALCOHOLISM
     Dosage: 1 TABLET DAILY
     Route: 048
     Dates: start: 20070201, end: 20070220

REACTIONS (10)
  - ALCOHOL DETOXIFICATION [None]
  - BLOOD CHOLESTEROL INCREASED [None]
  - DEHYDRATION [None]
  - DIABETES MELLITUS [None]
  - DIZZINESS [None]
  - GAMMA-GLUTAMYLTRANSFERASE INCREASED [None]
  - HEART RATE INCREASED [None]
  - HYPOTENSION [None]
  - NEUTROPHIL COUNT DECREASED [None]
  - RED BLOOD CELL COUNT DECREASED [None]
